FAERS Safety Report 14572237 (Version 1)
Quarter: 2018Q1

REPORT INFORMATION
  Report Type: Report from Study
  Country: BR (occurrence: BR)
  Receive Date: 20180226
  Receipt Date: 20180226
  Transmission Date: 20180509
  Serious: Yes (Hospitalization)
  Sender: FDA-Public Use
  Company Number: BR-UCBSA-2018007337

PATIENT
  Age: 62 Year
  Sex: Male

DRUGS (5)
  1. LACOSAMIDE. [Suspect]
     Active Substance: LACOSAMIDE
     Indication: SEIZURE
     Dosage: 100 MG, 2X/DAY (BID)
     Route: 048
     Dates: start: 201707, end: 2018
  2. KEPPRA [Suspect]
     Active Substance: LEVETIRACETAM
     Indication: SEIZURE
     Dosage: 750 MG, 3X/DAY (TID)
     Route: 048
     Dates: start: 20180202
  3. CLOBAZAM [Concomitant]
     Active Substance: CLOBAZAM
     Indication: SEIZURE
     Dosage: UNK
     Dates: end: 2018
  4. LACOSAMIDE. [Interacting]
     Active Substance: LACOSAMIDE
     Dosage: WITHDRAWN A FEW TIMES TO CHECK THE STABILITY OF THE SEIZURES
     Dates: start: 2017
  5. HIDANTAL [Concomitant]
     Active Substance: PHENYTOIN SODIUM
     Indication: SEIZURE
     Dosage: UNK
     Dates: end: 2018

REACTIONS (5)
  - Infection [Unknown]
  - Drug interaction [Unknown]
  - Therapeutic response decreased [Unknown]
  - Seizure [Not Recovered/Not Resolved]
  - Off label use [Unknown]

NARRATIVE: CASE EVENT DATE: 201712
